FAERS Safety Report 8821565 (Version 1)
Quarter: 2012Q4

REPORT INFORMATION
  Report Type: 
  Country: US (occurrence: US)
  Receive Date: 20121002
  Receipt Date: 20121002
  Transmission Date: 20130627
  Serious: Yes (Other)
  Sender: FDA-Public Use
  Company Number: CHPA2012US020606

PATIENT
  Age: 91 Year
  Sex: Female

DRUGS (1)
  1. VOLTAREN GEL [Suspect]
     Indication: ARTHRITIS
     Dosage: UNK, QHS
     Route: 061
     Dates: start: 2007, end: 2007

REACTIONS (7)
  - Hip fracture [Recovered/Resolved]
  - Muscle disorder [Not Recovered/Not Resolved]
  - Sensation of heaviness [Not Recovered/Not Resolved]
  - Road traffic accident [Recovered/Resolved]
  - Pain in extremity [Not Recovered/Not Resolved]
  - Underdose [Unknown]
  - Drug administered at inappropriate site [Unknown]
